FAERS Safety Report 26213655 (Version 1)
Quarter: 2025Q4

REPORT INFORMATION
  Report Type: Spontaneous
  Country: EU (occurrence: EU)
  Receive Date: 20251230
  Receipt Date: 20251230
  Transmission Date: 20260117
  Serious: Yes (Death, Other)
  Sender: AMGEN
  Company Number: EU-AMGEN-ITASP2025255986

PATIENT

DRUGS (5)
  1. BLINATUMOMAB [Suspect]
     Active Substance: BLINATUMOMAB
     Indication: Acute lymphocytic leukaemia
     Dosage: UNK
     Route: 065
  2. BLINATUMOMAB [Suspect]
     Active Substance: BLINATUMOMAB
     Indication: Philadelphia chromosome positive
  3. BLINATUMOMAB [Suspect]
     Active Substance: BLINATUMOMAB
     Indication: Chronic myeloid leukaemia
  4. ASCIMINIB [Concomitant]
     Active Substance: ASCIMINIB
     Indication: Acute lymphocytic leukaemia
     Dosage: UNK
     Route: 065
  5. ASCIMINIB [Concomitant]
     Active Substance: ASCIMINIB
     Indication: Philadelphia chromosome positive

REACTIONS (7)
  - Death [Fatal]
  - Acute lymphocytic leukaemia [Fatal]
  - Thrombocytopenia [Unknown]
  - Neutropenia [Unknown]
  - Therapy partial responder [Unknown]
  - Musculoskeletal pain [Unknown]
  - Hypertension [Unknown]
